FAERS Safety Report 9279369 (Version 4)
Quarter: 2013Q3

REPORT INFORMATION
  Report Type: Report from Study
  Country: FR (occurrence: FR)
  Receive Date: 20130508
  Receipt Date: 20130719
  Transmission Date: 20140515
  Serious: Yes (Hospitalization)
  Sender: FDA-Public Use
  Company Number: FR-CELGENEUS-056-21880-13033806

PATIENT
  Age: 62 Year
  Sex: Male
  Weight: 78 kg

DRUGS (5)
  1. REVLIMID [Suspect]
     Indication: LYMPHOMA
     Dosage: 20 MILLIGRAM
     Route: 048
     Dates: start: 20130305, end: 20130319
  2. RITUXIMAB [Suspect]
     Indication: LYMPHOMA
     Route: 065
     Dates: start: 20130304, end: 20130320
  3. KARDEGIC [Concomitant]
     Indication: THROMBOSIS PROPHYLAXIS
     Route: 065
     Dates: start: 20130304, end: 20130320
  4. ZYLORIC [Concomitant]
     Indication: PROPHYLAXIS
     Route: 065
     Dates: start: 20130304, end: 20130320
  5. FLECAINE [Concomitant]
     Indication: ARRHYTHMIA
     Route: 065

REACTIONS (2)
  - Brugada syndrome [Recovered/Resolved]
  - Dermatitis allergic [Recovered/Resolved]
